FAERS Safety Report 9799434 (Version 3)
Quarter: 2016Q2

REPORT INFORMATION
  Report Type: Spontaneous
  Country: US (occurrence: US)
  Receive Date: 20140106
  Receipt Date: 20160629
  Transmission Date: 20160815
  Serious: No
  Sender: FDA-Public Use
  Company Number: US-PFIZER INC-2013374811

PATIENT
  Age: 70 Year
  Sex: Female

DRUGS (28)
  1. MORPHINE [Concomitant]
     Active Substance: MORPHINE
     Dosage: UNK
  2. LYRICA [Suspect]
     Active Substance: PREGABALIN
     Indication: FIBROMYALGIA
     Dosage: 100 MG, 3X/DAY
     Route: 048
     Dates: start: 2012
  3. CYMBALTA [Concomitant]
     Active Substance: DULOXETINE HYDROCHLORIDE
     Dosage: UNK
  4. ASPIRIN (E.C.) [Concomitant]
     Active Substance: ASPIRIN
     Dosage: 325 MG, DAILY
     Route: 048
  5. NORCO [Concomitant]
     Active Substance: ACETAMINOPHEN\HYDROCODONE BITARTRATE
     Indication: PAIN
     Dosage: AS NEEDED (HYDROCODONE BITARTRATE-10 MG, PARACETAMOL-325 MG) TAKE 1-2 TABS BY MOUTH EVERY 6 HOURS
     Route: 048
  6. ATIVAN [Concomitant]
     Active Substance: LORAZEPAM
     Indication: ANXIETY
     Dosage: 0.6 MG, AS NEEDED (NIGHTLY)
     Route: 048
  7. PROZAC [Concomitant]
     Active Substance: FLUOXETINE HYDROCHLORIDE
     Dosage: 40 MG, DAILY (TAKE 1 CAPSULE BY MOUTH DAILY)
     Route: 048
  8. LISINOPRIL. [Concomitant]
     Active Substance: LISINOPRIL
     Dosage: UNK
  9. MELATONIN [Concomitant]
     Active Substance: MELATONIN
     Indication: SLEEP DISORDER
     Dosage: 6 MG, AS NEEDED (NIGHTLY)
     Route: 048
  10. MYCOSTATIN [Concomitant]
     Active Substance: NYSTATIN
     Dosage: 5 ML, 4X/DAY (100000 UNIT/ML) (4 TIMES DAILY FOR 10 DAYS) (SWISH, GARGLE, SWALLOW)
     Route: 048
  11. ASA [Concomitant]
     Active Substance: ASPIRIN
     Dosage: UNK
  12. CELEBREX [Concomitant]
     Active Substance: CELECOXIB
     Dosage: 200 MG, 2X/DAY
     Route: 048
  13. ESOMEPRAZOLE [Concomitant]
     Active Substance: ESOMEPRAZOLE
     Dosage: 20 MG, DAILY
     Route: 048
  14. FERROUS SULFATE. [Concomitant]
     Active Substance: FERROUS SULFATE
     Dosage: 325 MG, 3X/DAY (TAKE WITH VITAMIN C OR DRINK WITH ORANGE JUICE )
     Route: 048
  15. MIRAPEX [Concomitant]
     Active Substance: PRAMIPEXOLE DIHYDROCHLORIDE
     Dosage: 0.5 MG, 1X/DAY (TAKE ONE TABLET BY MOUTH NIGHTLY)
     Route: 048
  16. ELAVIL [Concomitant]
     Active Substance: AMITRIPTYLINE HYDROCHLORIDE
     Dosage: 25 MG, DAILY (TAKE 1 TABLET BY MOUTH DAILY)
     Route: 048
  17. ALBUTEROL. [Concomitant]
     Active Substance: ALBUTEROL
     Dosage: UNK
  18. PROPRANOLOL [Concomitant]
     Active Substance: PROPRANOLOL\PROPRANOLOL HYDROCHLORIDE
     Dosage: UNK
  19. BACITRACIN. [Concomitant]
     Active Substance: BACITRACIN
     Dosage: UNK UNK, AS NEEDED (600 UNIT/GM ), (APPLY TO AREA INSIDE AND OUTSIDE 3 TIMES A DAY AS NEEDED)
     Route: 048
  20. SIMVASTATIN. [Concomitant]
     Active Substance: SIMVASTATIN
     Dosage: UNK
  21. GLUCOPHAGE XR [Concomitant]
     Active Substance: METFORMIN HYDROCHLORIDE
     Dosage: 500 MG, DAILY
     Route: 048
  22. LYRICA [Suspect]
     Active Substance: PREGABALIN
     Dosage: 100 MG, 2X/DAY (1 TAB BID)
     Route: 048
  23. MOBIC [Concomitant]
     Active Substance: MELOXICAM
     Dosage: 7.5 MG, DAILY (TAKE 1 TABLET BY MOUTH DAILY)
     Route: 048
  24. HYDROCHLOROTHIAZIDE. [Concomitant]
     Active Substance: HYDROCHLOROTHIAZIDE
     Dosage: UNK
  25. VITAMIN C [Concomitant]
     Active Substance: ASCORBIC ACID
     Dosage: 600 MG, 2X/DAY
     Route: 048
  26. ATIVAN [Concomitant]
     Active Substance: LORAZEPAM
     Indication: SLEEP DISORDER
  27. DITROPAN-XL [Concomitant]
     Dosage: 30 MG, DAILY (10 MG, 3 TABS BY MOUTH DAILY)
     Route: 048
  28. KENALOG [Concomitant]
     Active Substance: TRIAMCINOLONE ACETONIDE
     Indication: ECZEMA
     Dosage: UNK UNK, 2X/DAY (APPLY SMALL AMOUNT TO BOTH HANDS 2 TIMES A DAY FOR WEEKS-MAY REPEAT EVERY 2 WEEK)
     Route: 061

REACTIONS (1)
  - Malaise [Unknown]

NARRATIVE: CASE EVENT DATE: 201312
